FAERS Safety Report 6279736-6 (Version None)
Quarter: 2009Q3

REPORT INFORMATION
  Report Type: 
  Country: None (occurrence: None)
  Receive Date: 20090721
  Receipt Date: 20090707
  Transmission Date: 20100115
  Serious: Yes (Other)
  Sender: FDA-Public Use
  Company Number: MIN-00516

PATIENT
  Age: 62 Year
  Sex: Male

DRUGS (1)
  1. MINOCYCLINE HYDROCHLORIDE [Suspect]
     Indication: LYMPHOMATOID PAPULOSIS
     Dosage: 100 MG DAILY

REACTIONS (7)
  - APRAXIA [None]
  - COGNITIVE DISORDER [None]
  - CONFUSIONAL STATE [None]
  - DRUG HYPERSENSITIVITY [None]
  - MALAISE [None]
  - MOBILITY DECREASED [None]
  - WHITE BLOOD CELL COUNT INCREASED [None]
